FAERS Safety Report 5642673-1 (Version None)
Quarter: 2008Q1

REPORT INFORMATION
  Report Type: 
  Country: None (occurrence: None)
  Receive Date: 20080226
  Receipt Date: 20080215
  Transmission Date: 20080703
  Serious: Yes (Hospitalization)
  Sender: FDA-Public Use
  Company Number: E2020-02304-SPO-JP

PATIENT
  Age: 78 Year
  Sex: Male

DRUGS (7)
  1. ARICEPT [Suspect]
     Indication: DRUG USE FOR UNKNOWN INDICATION
     Dosage: ORAL
     Route: 048
     Dates: start: 20020101
  2. SELBEX (TEPRENONE) [Concomitant]
  3. CEROCRAL (IFENPRODIL TARTRATE) [Concomitant]
  4. PANALDINE (TICLOPIDINE HYDROCHLORIDE) [Concomitant]
  5. PLETAL [Concomitant]
  6. ALINAMIN-F (FURSULTIAMINE) [Concomitant]
  7. BIOFERMIN (BIOFERMIN) [Concomitant]

REACTIONS (2)
  - CEREBRAL INFARCTION [None]
  - RHABDOMYOLYSIS [None]
